FAERS Safety Report 11337050 (Version 3)
Quarter: 2015Q4

REPORT INFORMATION
  Report Type: Report from Study
  Country: JP (occurrence: JP)
  Receive Date: 20150804
  Receipt Date: 20151015
  Transmission Date: 20160304
  Serious: Yes (Other)
  Sender: FDA-Public Use
  Company Number: JP-GILEAD-2015-0165749

PATIENT
  Age: 33 Year
  Sex: Female

DRUGS (42)
  1. ALFAROL [Concomitant]
     Active Substance: ALFACALCIDOL
     Dosage: UNK
     Route: 048
  2. MARZULENE S [Concomitant]
     Active Substance: GLUTAMINE\SODIUM GUALENATE
     Indication: PROPHYLAXIS AGAINST GASTROINTESTINAL ULCER
     Dosage: UNK
     Route: 048
  3. PREDNISOLONE. [Concomitant]
     Active Substance: PREDNISOLONE
     Dosage: UNK
     Route: 048
  4. PREDNISOLONE. [Concomitant]
     Active Substance: PREDNISOLONE
     Dosage: UNK
     Route: 048
  5. CALCIUM LACTATE PENTAHYDRATE [Concomitant]
     Dosage: UNK
     Route: 048
  6. METHYLPREDNISOLONE SODIUM SUCCINATE. [Concomitant]
     Active Substance: METHYLPREDNISOLONE SODIUM SUCCINATE
     Indication: VASCULITIS
  7. IMURAN [Concomitant]
     Active Substance: AZATHIOPRINE
     Dosage: UNK
     Route: 048
     Dates: start: 20140114
  8. REVATIO [Concomitant]
     Active Substance: SILDENAFIL CITRATE
     Indication: VASCULITIS
  9. SOL-MELCORT [Concomitant]
     Active Substance: METHYLPREDNISOLONE SODIUM SUCCINATE
     Indication: VASCULITIS
  10. HIRUDOID                           /00723701/ [Concomitant]
     Dosage: UNK
     Route: 061
     Dates: end: 20130722
  11. JUVELA                             /00110502/ [Concomitant]
     Dosage: UNK
     Route: 061
     Dates: start: 20131112, end: 20131216
  12. AMBRISENTAN [Suspect]
     Active Substance: AMBRISENTAN
     Indication: VASCULITIS
     Dosage: 2.5 MG, BID
     Route: 048
     Dates: start: 20131112, end: 20131226
  13. AMBRISENTAN [Suspect]
     Active Substance: AMBRISENTAN
     Dosage: 2.5 MG, TID
     Route: 048
     Dates: start: 20131227, end: 20131231
  14. AMBRISENTAN [Suspect]
     Active Substance: AMBRISENTAN
     Dosage: 2.5 MG, BID
     Route: 048
     Dates: start: 20140101
  15. MARZULENE S [Concomitant]
     Active Substance: GLUTAMINE\SODIUM GUALENATE
     Dosage: UNK
     Route: 048
  16. REVATIO [Concomitant]
     Active Substance: SILDENAFIL CITRATE
     Indication: SYSTEMIC LUPUS ERYTHEMATOSUS
     Dosage: UNK
     Route: 048
     Dates: start: 20130329, end: 20130331
  17. HIRUDOID                           /00723701/ [Concomitant]
     Dosage: UNK
     Route: 061
     Dates: start: 20140204
  18. JUVELA                             /00110502/ [Concomitant]
     Dosage: UNK
     Route: 061
     Dates: start: 20131112, end: 20131216
  19. GENTACIN [Concomitant]
     Active Substance: GENTAMICIN SULFATE
     Dosage: UNK
     Route: 061
     Dates: start: 20131217, end: 20140113
  20. PREDOHAN [Concomitant]
     Active Substance: PREDNISOLONE
     Dosage: UNK
     Route: 048
     Dates: start: 20130723, end: 20140331
  21. JUVELA N [Concomitant]
     Active Substance: TOCOPHERYL NICOTINATE, D-.ALPHA.
     Dosage: UNK
     Route: 048
  22. PREDNISOLONE. [Concomitant]
     Active Substance: PREDNISOLONE
     Dosage: UNK
     Route: 048
  23. THYRADIN [Concomitant]
     Active Substance: LEVOTHYROXINE
     Indication: POST PROCEDURAL HYPOTHYROIDISM
     Dosage: UNK
     Route: 048
  24. AZUNOL                             /00620101/ [Concomitant]
     Dosage: UNK
     Dates: start: 20130513, end: 20130527
  25. IMURAN [Concomitant]
     Active Substance: AZATHIOPRINE
     Dosage: UNK
     Route: 048
     Dates: start: 20140114
  26. AZUNOL                             /00620101/ [Concomitant]
     Dosage: UNK
     Dates: start: 20130513, end: 20130527
  27. HIRUDOID                           /00723701/ [Concomitant]
     Dosage: UNK
     Dates: start: 20130917, end: 20131216
  28. AMBRISENTAN [Suspect]
     Active Substance: AMBRISENTAN
     Indication: SYSTEMIC LUPUS ERYTHEMATOSUS
     Dosage: 2.5 MG, QD
     Route: 048
     Dates: start: 20130514, end: 20131111
  29. ACUATIM [Concomitant]
     Active Substance: NADIFLOXACIN
     Dosage: UNK
     Route: 061
     Dates: start: 20130625, end: 20130722
  30. LAMISIL [Concomitant]
     Active Substance: TERBINAFINE HYDROCHLORIDE
     Dosage: UNK
     Dates: start: 20130723, end: 20131014
  31. HIRUDOID                           /00723701/ [Concomitant]
     Dosage: UNK
     Route: 061
     Dates: start: 20140204
  32. BREDININ [Concomitant]
     Active Substance: MIZORIBINE
     Dosage: UNK
     Route: 048
     Dates: end: 20140113
  33. PREDNISOLONE. [Concomitant]
     Active Substance: PREDNISOLONE
     Dosage: UNK
     Route: 048
     Dates: start: 20130723, end: 20140331
  34. THYRADIN-S [Concomitant]
     Active Substance: LEVOTHYROXINE
     Dosage: UNK
     Route: 048
  35. HIRUDOID                           /00723701/ [Concomitant]
     Dosage: UNK
     Route: 061
     Dates: end: 20130722
  36. SOL-MELCORT [Concomitant]
     Active Substance: METHYLPREDNISOLONE SODIUM SUCCINATE
     Indication: SYSTEMIC LUPUS ERYTHEMATOSUS
     Dosage: UNK
     Route: 042
     Dates: start: 20130306, end: 20130308
  37. CALCIUM LACTATE [Concomitant]
     Active Substance: CALCIUM LACTATE
     Dosage: UNK
     Route: 048
  38. BONALON [Concomitant]
     Active Substance: ALENDRONATE SODIUM
     Dosage: UNK
     Route: 048
  39. METHYLPREDNISOLONE SODIUM SUCCINATE. [Concomitant]
     Active Substance: METHYLPREDNISOLONE SODIUM SUCCINATE
     Indication: SYSTEMIC LUPUS ERYTHEMATOSUS
     Dosage: UNK
     Route: 042
     Dates: start: 20130306, end: 20130308
  40. ALLEGRA [Concomitant]
     Active Substance: FEXOFENADINE HYDROCHLORIDE
     Dosage: UNK
     Route: 048
  41. HIRUDOID                           /00723701/ [Concomitant]
     Dosage: UNK
     Dates: start: 20130917, end: 20131216
  42. ACUATIM [Concomitant]
     Active Substance: NADIFLOXACIN
     Dosage: UNK
     Dates: start: 20130820, end: 20130916

REACTIONS (5)
  - Headache [Recovered/Resolved]
  - Leukopenia [Recovered/Resolved]
  - Off label use [Unknown]
  - Leukopenia [Recovered/Resolved]
  - Headache [Recovered/Resolved]

NARRATIVE: CASE EVENT DATE: 20130514
